FAERS Safety Report 25807427 (Version 1)
Quarter: 2025Q3

REPORT INFORMATION
  Report Type: Spontaneous
  Country: CA (occurrence: CA)
  Receive Date: 20250916
  Receipt Date: 20250916
  Transmission Date: 20251020
  Serious: Yes (Other)
  Sender: PFIZER
  Company Number: CA-PFIZER INC-PV202500111242

PATIENT
  Age: 51 Year
  Sex: Female

DRUGS (1)
  1. IXIFI [Suspect]
     Active Substance: INFLIXIMAB-QBTX
     Route: 042
     Dates: start: 20250715

REACTIONS (2)
  - Haematochezia [Recovering/Resolving]
  - Arthralgia [Recovered/Resolved]
